FAERS Safety Report 24438777 (Version 2)
Quarter: 2025Q3

REPORT INFORMATION
  Report Type: Report from Study
  Country: US (occurrence: US)
  Receive Date: 20241015
  Receipt Date: 20250810
  Transmission Date: 20251021
  Serious: Yes (Other)
  Sender: ALEXION PHARMACEUTICALS
  Company Number: US-ALXN-202410USA005812US

PATIENT
  Sex: Female

DRUGS (1)
  1. STRENSIQ [Suspect]
     Active Substance: ASFOTASE ALFA
     Route: 065

REACTIONS (8)
  - Migraine [Not Recovered/Not Resolved]
  - Vitamin B6 increased [Unknown]
  - Lipodystrophy acquired [Recovered/Resolved]
  - Pain in extremity [Recovered/Resolved]
  - Tenderness [Recovered/Resolved]
  - Blood triglycerides abnormal [Not Recovered/Not Resolved]
  - Lipids abnormal [Not Recovered/Not Resolved]
  - Therapeutic response decreased [Unknown]
